FAERS Safety Report 7005662-0 (Version None)
Quarter: 2010Q3

REPORT INFORMATION
  Report Type: 
  Country: None (occurrence: None)
  Receive Date: 20100921
  Receipt Date: 20100915
  Transmission Date: 20110219
  Serious: Yes (Hospitalization)
  Sender: FDA-Public Use
  Company Number: B0672876A

PATIENT
  Sex: Female

DRUGS (12)
  1. SERETIDE [Suspect]
     Indication: ASTHMA
     Route: 055
     Dates: start: 20080409, end: 20081017
  2. UNIPHYL [Concomitant]
     Indication: ASTHMA
     Dosage: 400MG PER DAY
     Route: 048
     Dates: start: 20080409, end: 20081017
  3. KIPRES [Concomitant]
     Indication: ASTHMA
     Dosage: 10MG PER DAY
     Route: 048
     Dates: start: 20080409, end: 20081017
  4. CLEANAL [Concomitant]
     Indication: ASTHMA
     Dosage: 200MG PER DAY
     Route: 048
     Dates: start: 20080409, end: 20081017
  5. PREDONINE [Concomitant]
     Indication: ASTHMA
     Route: 048
     Dates: start: 20080409, end: 20080416
  6. PREDONINE [Concomitant]
     Route: 048
     Dates: start: 20080604, end: 20080611
  7. PREDONINE [Concomitant]
     Route: 048
     Dates: start: 20080930, end: 20081014
  8. NEOPHYLLIN INJECTION [Concomitant]
     Indication: ASTHMA
     Route: 042
     Dates: start: 20080409, end: 20080409
  9. NEOPHYLLIN INJECTION [Concomitant]
     Route: 042
     Dates: start: 20081014, end: 20081017
  10. SOLU-MEDROL [Concomitant]
     Indication: ASTHMA
     Route: 042
     Dates: start: 20080409, end: 20080409
  11. SOLU-MEDROL [Concomitant]
     Route: 042
     Dates: start: 20081014, end: 20081017
  12. SPIROPENT [Concomitant]
     Indication: ASTHMA
     Route: 042
     Dates: end: 20081017

REACTIONS (1)
  - STATUS ASTHMATICUS [None]
